FAERS Safety Report 9383001 (Version 1)
Quarter: 2013Q3

REPORT INFORMATION
  Report Type: Spontaneous
  Country: IN (occurrence: IN)
  Receive Date: 20130703
  Receipt Date: 20130703
  Transmission Date: 20140515
  Serious: Yes (Hospitalization)
  Sender: FDA-Public Use
  Company Number: IN-ABBOTT-13X-078-1113795-00

PATIENT
  Age: 17 Year
  Sex: Female

DRUGS (14)
  1. SODIUM VALPROATE [Suspect]
     Indication: GRAND MAL CONVULSION
     Dosage: 600 MILLIGRAM(S);DAILY
     Route: 048
  2. SODIUM VALPROATE [Suspect]
     Indication: BIPOLAR DISORDER
     Dosage: 800 MILLIGRAM(S);DAILY
     Route: 048
  3. SODIUM VALPROATE [Suspect]
     Dosage: 1600 MILLIGRAM(S);DAILY
     Route: 048
  4. SODIUM VALPROATE [Suspect]
     Dosage: 200 MILLIGRAM(S);DAILY
     Route: 048
  5. SODIUM VALPROATE [Suspect]
     Dosage: 400 MILLIGRAM(S);DAILY
     Route: 048
  6. SODIUM VALPROATE [Suspect]
     Dosage: 600 MILLIGRAM(S);DAILY
     Route: 048
  7. SODIUM VALPROATE [Suspect]
     Dosage: 800 MILLIGRAM(S);DAILY
     Route: 048
  8. SODIUM VALPROATE [Suspect]
     Dosage: 1000 MILLIGRAM(S);DAILY
     Route: 048
  9. SODIUM VALPROATE [Suspect]
     Dosage: 1200 MILLIGRAM(S);DAILY
     Route: 048
  10. SODIUM VALPROATE [Suspect]
     Dosage: 1400 MILLIGRAM(S);DAILY
     Route: 048
  11. SODIUM VALPROATE [Suspect]
     Dosage: 1600 MILLIGRAM(S);DAILY
     Route: 048
  12. CARBAMAZEPINE [Suspect]
     Indication: GRAND MAL CONVULSION
     Dosage: 200 MILLIGRAM(S);DAILY
  13. CARBAMAZEPINE [Suspect]
     Dosage: 200 MILLIGRAM(S); TWICE A DAY
  14. CARBAMAZEPINE [Suspect]
     Dosage: 200 MILLIGRAM(S); 3 TIMES A DAY

REACTIONS (12)
  - Erythema multiforme [Recovering/Resolving]
  - Pyrexia [Unknown]
  - Ocular hyperaemia [Unknown]
  - Swelling [Unknown]
  - Rash [Unknown]
  - Blister [Unknown]
  - Mucous membrane disorder [Unknown]
  - Vaginal ulceration [Unknown]
  - Altered state of consciousness [Unknown]
  - Sedation [Recovering/Resolving]
  - Inappropriate schedule of drug administration [Unknown]
  - Dysphagia [Unknown]
